FAERS Safety Report 5490440-4 (Version None)
Quarter: 2007Q4

REPORT INFORMATION
  Report Type: 
  Country: None (occurrence: None)
  Receive Date: 20071017
  Receipt Date: 20071017
  Transmission Date: 20080405
  Serious: Yes (Hospitalization)
  Sender: FDA-Public Use
  Company Number: None

PATIENT
  Sex: Female
  Weight: 93.98 kg

DRUGS (1)
  1. TEMOZOLOMIDE [Suspect]
     Dosage: 2050 MG

REACTIONS (7)
  - BRAIN NEOPLASM [None]
  - DISEASE PROGRESSION [None]
  - NECROSIS [None]
  - NEUTROPHIL COUNT DECREASED [None]
  - PLATELET COUNT DECREASED [None]
  - RADIATION INJURY [None]
  - WHITE BLOOD CELL COUNT DECREASED [None]
